FAERS Safety Report 9108255 (Version 1)
Quarter: 2013Q1

REPORT INFORMATION
  Report Type: Spontaneous
  Country: US (occurrence: US)
  Receive Date: 20130222
  Receipt Date: 20130222
  Transmission Date: 20140127
  Serious: No
  Sender: FDA-Public Use
  Company Number: US-009507513-1302USA009527

PATIENT
  Sex: Female
  Weight: 118.82 kg

DRUGS (2)
  1. IMPLANON [Suspect]
     Indication: CONTRACEPTION
     Dosage: UNK
     Route: 059
     Dates: start: 20120409
  2. INDOCIN (INDOMETHACIN) [Concomitant]

REACTIONS (1)
  - Implant site mass [Unknown]
